FAERS Safety Report 8357679-1 (Version None)
Quarter: 2012Q2

REPORT INFORMATION
  Report Type: 
  Country: None (occurrence: None)
  Receive Date: 20120514
  Receipt Date: 20120511
  Transmission Date: 20120825
  Serious: Yes (Other)
  Sender: FDA-Public Use
  Company Number: US-PFIZER INC-2012115742

PATIENT
  Sex: Female
  Weight: 68 kg

DRUGS (3)
  1. CALCIUM [Concomitant]
     Dosage: UNK, 1X/DAY
  2. NEURONTIN [Concomitant]
     Dosage: UNK
  3. DILANTIN [Suspect]
     Indication: EPILEPSY
     Dosage: 100 MG, UNK
     Route: 048

REACTIONS (5)
  - ARTHROPATHY [None]
  - BONE DISORDER [None]
  - BALANCE DISORDER [None]
  - FATIGUE [None]
  - OSTEOPENIA [None]
